FAERS Safety Report 11684374 (Version 1)
Quarter: 2015Q4

REPORT INFORMATION
  Report Type: Report from Study
  Country: BE (occurrence: BE)
  Receive Date: 20151029
  Receipt Date: 20151029
  Transmission Date: 20160304
  Serious: Yes (Death, Hospitalization)
  Sender: FDA-Public Use
  Company Number: BE-ABBVIE-15P-013-1411615-00

PATIENT
  Age: 86 Year
  Sex: Female

DRUGS (11)
  1. DUODOPA [Suspect]
     Active Substance: CARBIDOPA\LEVODOPA
     Dosage: AM=4ML; CD=4.5ML/HR DURING 16HRS; ED=1.5ML
     Route: 050
     Dates: start: 20150907, end: 20151021
  2. DUODOPA [Suspect]
     Active Substance: CARBIDOPA\LEVODOPA
     Dosage: DOSE CONTINUOUSLY MONITORED AND ADAPTED
     Route: 050
     Dates: start: 20140711, end: 20150324
  3. DUODOPA [Suspect]
     Active Substance: CARBIDOPA\LEVODOPA
     Dosage: AM=4 ML(WITH UPPER LIMIT 6 ML),CD=4.5 ML/H DURING 16H,ED=2 ML,ND=3 ML/H DURING 8H
     Route: 050
     Dates: start: 20150610, end: 20150618
  4. DUODOPA [Suspect]
     Active Substance: CARBIDOPA\LEVODOPA
     Dosage: AM=4ML, CD=4.3ML/H DURING 16H,ED=2ML,ND=3ML/H DURING 8H
     Route: 050
     Dates: start: 20150324, end: 20150610
  5. DUODOPA [Suspect]
     Active Substance: CARBIDOPA\LEVODOPA
     Dosage: AM=4 ML,CD=4.3 ML/H DURING 16H,ED=2 ML,ND=3.5 ML/H DURING 8H
     Route: 050
     Dates: start: 20150618, end: 20150812
  6. PROLOPA [Concomitant]
     Active Substance: BENSERAZIDE\LEVODOPA
     Indication: PARKINSON^S DISEASE
     Dosage: FORM STRENGTH: 20MG/50MG; UNIT DOSE: 1 TABLET EMERGENCY MEDICATION: 5 IN 1 DAY
  7. DUODOPA [Suspect]
     Active Substance: CARBIDOPA\LEVODOPA
     Dosage: AM=4ML; CD=4.4ML/HR DURING 16HRS; ED=1.5ML; ND=3.5ML/HR DURING 8HRS
     Route: 050
     Dates: start: 20151023
  8. MIRAPEXIN [Concomitant]
     Active Substance: PRAMIPEXOLE
     Indication: PARKINSON^S DISEASE
     Dates: start: 20140814
  9. DUODOPA [Suspect]
     Active Substance: CARBIDOPA\LEVODOPA
     Indication: PARKINSON^S DISEASE
     Dosage: AM=6ML,CD=3.7ML/H DURING 16H,ED=1.5ML,ND=2.5ML/H DURING 8H
     Route: 050
     Dates: start: 20140707, end: 20140711
  10. DUODOPA [Suspect]
     Active Substance: CARBIDOPA\LEVODOPA
     Dosage: AM=4ML; CD=4.2ML/HR DURING 16HRS; ED=1.5ML; ND=3.5ML/HR DURING 8HRS
     Route: 050
     Dates: start: 20151021, end: 20151023
  11. DUODOPA [Suspect]
     Active Substance: CARBIDOPA\LEVODOPA
     Dosage: AM=4 ML,CD=4.3 ML/H DURING 16H,ED=2 ML,ND=3.5 ML/H DURING 16H
     Route: 050
     Dates: start: 20150812, end: 20150907

REACTIONS (12)
  - Mobility decreased [Unknown]
  - Death [Fatal]
  - Freezing phenomenon [Unknown]
  - Dyskinesia [Unknown]
  - Unevaluable event [Unknown]
  - Muscle rigidity [Unknown]
  - Device issue [Unknown]
  - Drug administration error [Unknown]
  - General physical health deterioration [Unknown]
  - Gait disturbance [Unknown]
  - Dystonia [Unknown]
  - Incorrect dose administered [Unknown]

NARRATIVE: CASE EVENT DATE: 20151024
